FAERS Safety Report 10261066 (Version 2)
Quarter: 2014Q3

REPORT INFORMATION
  Report Type: Spontaneous
  Country: JP (occurrence: JP)
  Receive Date: 20140626
  Receipt Date: 20140925
  Transmission Date: 20150326
  Serious: Yes (Life-Threatening, Hospitalization)
  Sender: FDA-Public Use
  Company Number: JP-SHIRE-JP201403161

PATIENT
  Age: 74 Year
  Sex: Male

DRUGS (5)
  1. REGPARA [Concomitant]
     Active Substance: CINACALCET HYDROCHLORIDE
     Indication: HYPERPARATHYROIDISM SECONDARY
     Dosage: 25 MG, UNKNOWN
     Route: 048
     Dates: end: 20120407
  2. FOSRENOL [Suspect]
     Active Substance: LANTHANUM CARBONATE
     Indication: HYPERPHOSPHATAEMIA
     Dosage: 750 MG, UNKNOWN (TOTAL DAILY DOSE)
     Route: 048
     Dates: end: 20120407
  3. ANPLAG [Concomitant]
     Active Substance: SARPOGRELATE
     Indication: PERIPHERAL ARTERIAL OCCLUSIVE DISEASE
     Dosage: 300 MG, UNKNOWN
     Route: 048
     Dates: end: 20120407
  4. KETOBUN A [Concomitant]
     Active Substance: ALLOPURINOL
     Indication: HYPERPHOSPHATAEMIA
     Dosage: 100 MG, UNKNOWN
     Route: 048
     Dates: end: 20120407
  5. KALIMATE [Suspect]
     Active Substance: POLYSTYRENE SULFONIC ACID
     Indication: HYPERKALAEMIA
     Dosage: 3 DF, 1X/DAY:QD
     Route: 048
     Dates: end: 20120407

REACTIONS (1)
  - Large intestine perforation [Recovered/Resolved]

NARRATIVE: CASE EVENT DATE: 201204
